FAERS Safety Report 8316246 (Version 2)
Quarter: 2013Q3

REPORT INFORMATION
  Report Type: Report from Study
  Country: MW (occurrence: MW)
  Receive Date: 20111229
  Receipt Date: 20130830
  Transmission Date: 20140515
  Serious: Yes (Other)
  Sender: FDA-Public Use
  Company Number: MW-ABBOTT-11P-100-0885806-00

PATIENT
  Sex: 0

DRUGS (4)
  1. ALUVIA TABLETS [Suspect]
     Indication: HIV INFECTION
     Route: 048
     Dates: start: 20110429
  2. COTRIMOXAZOLE [Concomitant]
     Indication: HIV INFECTION
     Dates: start: 20080108
  3. DOUVIR [Concomitant]
     Indication: HIV INFECTION
     Dates: start: 20110429
  4. TENOFOVIR [Concomitant]
     Indication: HIV INFECTION
     Dates: start: 20110429

REACTIONS (2)
  - Malaria [Recovered/Resolved]
  - Sepsis [Recovered/Resolved]
